FAERS Safety Report 4956304-7 (Version None)
Quarter: 2006Q1

REPORT INFORMATION
  Report Type: 
  Country: None (occurrence: None)
  Receive Date: 20060329
  Receipt Date: 20060317
  Transmission Date: 20060701
  Serious: Yes (Hospitalization)
  Sender: FDA-Public Use
  Company Number: DE-BRISTOL-MYERS SQUIBB COMPANY-13319132

PATIENT
  Age: 51 Year
  Sex: Male

DRUGS (4)
  1. ABILIFY [Suspect]
     Indication: SCHIZOPHRENIA
     Route: 048
     Dates: start: 20050812, end: 20051121
  2. CLOZAPINE [Suspect]
     Dosage: 25MG (NOV 14);50MG (NOV 15); 75MG(NOV 16);100MG (NOV 17);125MG(NOV 18);150MG (NOV 19);175MG (NOV 20)
     Route: 048
     Dates: start: 20051114, end: 20051120
  3. RISPERDAL [Suspect]
     Dosage: 6 MG/D (OCT-10 TO NOV-09)-} 5 MG/D (NOV-10)-} 4 MG/D (NOV-11 TO NOV-13)-} 3 MG/D (NOV-14 TO NOV-21)
     Route: 048
     Dates: start: 20051010, end: 20051121
  4. FURORESE [Concomitant]
     Dosage: STARTED A LONG TIME AGO AND REINTRODUCED AFTER EVENTS RESOLVED.
     Route: 048
     Dates: end: 20051120

REACTIONS (10)
  - AGITATION [None]
  - BLOOD CREATINE PHOSPHOKINASE INCREASED [None]
  - COORDINATION ABNORMAL [None]
  - DELIRIUM [None]
  - DRUG INEFFECTIVE [None]
  - DRUG INTERACTION [None]
  - RESTLESSNESS [None]
  - SALIVARY HYPERSECRETION [None]
  - SOMNOLENCE [None]
  - TREMOR [None]
